FAERS Safety Report 7160505-X (Version None)
Quarter: 2010Q4

REPORT INFORMATION
  Report Type: 
  Country: None (occurrence: None)
  Receive Date: 20101214
  Receipt Date: 20091210
  Transmission Date: 20110411
  Serious: No
  Sender: FDA-Public Use
  Company Number: US-AMGEN-KDL379771

PATIENT

DRUGS (4)
  1. ENBREL [Suspect]
     Indication: RHEUMATOID ARTHRITIS
     Dosage: 50 MG, QWK
     Route: 058
     Dates: start: 20080408
  2. METHOTREXATE [Concomitant]
     Dosage: 5 MG, QWK
     Route: 048
  3. LEFLUNOMIDE [Concomitant]
     Dosage: 20 MG, QD
     Route: 048
  4. PREDNISONE [Concomitant]

REACTIONS (2)
  - ARTHRALGIA [None]
  - RENAL IMPAIRMENT [None]
